FAERS Safety Report 9172860 (Version 1)
Quarter: 2013Q1

REPORT INFORMATION
  Report Type: Report from Study
  Country: CA (occurrence: CA)
  Receive Date: 20130319
  Receipt Date: 20130319
  Transmission Date: 20140127
  Serious: Yes (Other)
  Sender: FDA-Public Use
  Company Number: CA-JNJFOC-20130303811

PATIENT
  Age: 64 Year
  Sex: Male
  Weight: 93.9 kg

DRUGS (8)
  1. REMICADE [Suspect]
     Indication: CROHN^S DISEASE
     Route: 042
     Dates: start: 20030918
  2. DOXEPIN [Concomitant]
     Route: 065
  3. CELEXA [Concomitant]
     Route: 065
  4. PARIET [Concomitant]
     Route: 065
  5. CALCIUM [Concomitant]
     Route: 065
  6. VITAMIN [Concomitant]
     Route: 065
  7. LASIX [Concomitant]
     Route: 065
  8. FOLIC ACID [Concomitant]
     Route: 065

REACTIONS (1)
  - Myocardial infarction [Unknown]
